FAERS Safety Report 13618797 (Version 2)
Quarter: 2017Q2

REPORT INFORMATION
  Report Type: Report from Study
  Country: US (occurrence: US)
  Receive Date: 20170606
  Receipt Date: 20170609
  Transmission Date: 20170830
  Serious: Yes (Hospitalization)
  Sender: FDA-Public Use
  Company Number: US-ACTELION-A-US2017-153450

PATIENT
  Age: 63 Year
  Sex: Female
  Weight: 110.2 kg

DRUGS (3)
  1. SILDENAFIL CITRATE. [Concomitant]
     Active Substance: SILDENAFIL CITRATE
  2. VELETRI [Suspect]
     Active Substance: EPOPROSTENOL
     Indication: PULMONARY ARTERIAL HYPERTENSION
     Dosage: 11 NG/KG/MIN
     Route: 042
  3. VERAPAMIL [Concomitant]
     Active Substance: VERAPAMIL HYDROCHLORIDE

REACTIONS (11)
  - Catheter site pain [Unknown]
  - Pain in jaw [Unknown]
  - Dyspnoea [Unknown]
  - Central venous catheterisation [Unknown]
  - Pain in extremity [Unknown]
  - Fluid retention [Unknown]
  - Device dislocation [Unknown]
  - Catheter site rash [Unknown]
  - Nausea [Unknown]
  - Catheter site inflammation [Unknown]
  - Headache [Unknown]
